FAERS Safety Report 10576066 (Version 1)
Quarter: 2014Q4

REPORT INFORMATION
  Report Type: Spontaneous
  Country: US (occurrence: None)
  Receive Date: 20141110
  Receipt Date: 20141110
  Transmission Date: 20150529
  Serious: Yes (Hospitalization)
  Sender: FDA-Public Use
  Company Number: None

PATIENT
  Age: 14 Year
  Sex: Female
  Weight: 58 kg

DRUGS (3)
  1. ONCASPAR [Suspect]
     Active Substance: PEGASPARGASE
     Dates: end: 20141020
  2. PREDNISONE. [Suspect]
     Active Substance: PREDNISONE
     Dates: end: 20141102
  3. METHOTREXATE [Concomitant]
     Active Substance: METHOTREXATE
     Dates: end: 20141024

REACTIONS (11)
  - Klebsiella sepsis [None]
  - Skin candida [None]
  - Herpes simplex [None]
  - Respiratory failure [None]
  - Acute kidney injury [None]
  - Depressed level of consciousness [None]
  - Septic shock [None]
  - Skin disorder [None]
  - Therapeutic response decreased [None]
  - Metabolic acidosis [None]
  - Disseminated intravascular coagulation [None]

NARRATIVE: CASE EVENT DATE: 20141102
